FAERS Safety Report 5098787-0 (Version None)
Quarter: 2006Q3

REPORT INFORMATION
  Report Type: 
  Country: None (occurrence: None)
  Receive Date: 20060907
  Receipt Date: 20060811
  Transmission Date: 20061208
  Serious: No
  Sender: FDA-Public Use
  Company Number: US-AMGEN-US189677

PATIENT
  Sex: Male
  Weight: 77.6 kg

DRUGS (11)
  1. NEULASTA [Suspect]
     Indication: CHEMOTHERAPY
     Route: 058
     Dates: start: 20060802, end: 20060802
  2. TAXOL [Concomitant]
     Route: 065
     Dates: start: 20060801
  3. CARBOPLATIN [Concomitant]
     Route: 065
     Dates: start: 20060801
  4. RANITIDINE [Concomitant]
     Route: 065
     Dates: start: 20060801
  5. BENADRYL [Concomitant]
     Route: 065
     Dates: start: 20060801
  6. DECADRON [Concomitant]
     Route: 065
     Dates: start: 20060801
  7. ZOFRAN [Concomitant]
     Route: 065
     Dates: start: 20060801
  8. AMARYL [Concomitant]
     Route: 065
  9. VYTORIN [Concomitant]
     Route: 065
  10. COZAAR [Concomitant]
     Route: 065
  11. ARANESP [Concomitant]
     Route: 065
     Dates: start: 20060801

REACTIONS (1)
  - CHEST PAIN [None]
